FAERS Safety Report 4778828-8 (Version None)
Quarter: 2005Q3

REPORT INFORMATION
  Report Type: 
  Country: None (occurrence: None)
  Receive Date: 20050923
  Receipt Date: 20050915
  Transmission Date: 20060218
  Serious: Yes (Other)
  Sender: FDA-Public Use
  Company Number: 2005120574

PATIENT
  Age: 29 Year
  Sex: Male

DRUGS (5)
  1. LOMOTIL [Suspect]
     Indication: DIARRHOEA
     Dosage: UNK (QID INTERVAL: PRN), ORAL
     Route: 048
     Dates: start: 20050728
  2. TOPAMAX [Concomitant]
  3. COPAXONE [Concomitant]
  4. AMITRIPTYLINE HYDROCHLORIDE [Concomitant]
  5. METAMUCIL-2 [Concomitant]

REACTIONS (2)
  - CONDITION AGGRAVATED [None]
  - MULTIPLE SCLEROSIS [None]
